FAERS Safety Report 23628815 (Version 1)
Quarter: 2024Q1

REPORT INFORMATION
  Report Type: Spontaneous
  Country: US (occurrence: US)
  Receive Date: 20240313
  Receipt Date: 20240313
  Transmission Date: 20240410
  Serious: No
  Sender: FDA-Public Use
  Company Number: US-PFIZER INC-202400061753

PATIENT
  Age: 54 Year
  Sex: Female

DRUGS (2)
  1. EUCRISA [Suspect]
     Active Substance: CRISABOROLE
     Indication: Eczema eyelids
     Dosage: UNK, 1X/DAY
     Route: 061
  2. DEVICE [Concomitant]
     Active Substance: DEVICE
     Indication: Eczema eyelids
     Dosage: UNK, 1X/DAY
     Route: 061

REACTIONS (1)
  - Eye irritation [Unknown]
